FAERS Safety Report 9806161 (Version 2)
Quarter: 2014Q1

REPORT INFORMATION
  Report Type: Spontaneous
  Country: IT (occurrence: IT)
  Receive Date: 20140109
  Receipt Date: 20140220
  Transmission Date: 20141002
  Serious: Yes (Other)
  Sender: FDA-Public Use
  Company Number: IT-PFIZER INC-2014004038

PATIENT
  Age: 23 Year
  Sex: Male

DRUGS (4)
  1. XANAX [Suspect]
     Dosage: 2 DF, TOTAL DOSAGE
     Route: 048
     Dates: start: 20131220, end: 20131220
  2. EFEXOR ER [Suspect]
     Dosage: 2 DF, TOTAL DOSAGE
     Route: 048
     Dates: start: 20131220, end: 20131220
  3. OLANZAPINE [Suspect]
     Dosage: 5 MG, TOTAL DOSAGE
     Route: 048
     Dates: start: 20131220, end: 20131220
  4. LENDORMIN [Suspect]
     Dosage: 2 DF, TOTAL DOSAGE
     Route: 048
     Dates: start: 20131220, end: 20131220

REACTIONS (5)
  - Intentional self-injury [Recovering/Resolving]
  - Drug abuse [Recovered/Resolved]
  - Sopor [Recovering/Resolving]
  - Mydriasis [Recovering/Resolving]
  - Headache [Recovering/Resolving]
